FAERS Safety Report 15652165 (Version 1)
Quarter: 2018Q4

REPORT INFORMATION
  Report Type: Spontaneous
  Country: US (occurrence: US)
  Receive Date: 20181123
  Receipt Date: 20181123
  Transmission Date: 20190205
  Serious: No
  Sender: FDA-Public Use
  Company Number: US-ASTRAZENECA-2018SF53572

PATIENT

DRUGS (1)
  1. PRILOSEC OTC [Suspect]
     Active Substance: OMEPRAZOLE MAGNESIUM
     Dosage: NONE
     Route: 048

REACTIONS (3)
  - Onychoclasis [Unknown]
  - Product package associated injury [Unknown]
  - Product packaging issue [Unknown]
